FAERS Safety Report 24361809 (Version 1)
Quarter: 2024Q3

REPORT INFORMATION
  Report Type: Spontaneous
  Country: US (occurrence: US)
  Receive Date: 20240925
  Receipt Date: 20240925
  Transmission Date: 20241016
  Serious: Yes (Other)
  Sender: PFIZER
  Company Number: US-PFIZER INC-202400260337

PATIENT
  Age: 76 Year
  Sex: Female
  Weight: 67 kg

DRUGS (4)
  1. HEPARIN SODIUM [Interacting]
     Active Substance: HEPARIN SODIUM
     Indication: Aortic dissection
     Dosage: 400 IU/KG (BOLUS) (27000 U, 7:48 PM)
  2. ANDEXANET ALFA [Interacting]
     Active Substance: ANDEXANET ALFA
     Indication: Aortic dissection
     Dosage: 400 MG + 4 MG/MIN (BOLUS)
  3. APIXABAN [Concomitant]
     Active Substance: APIXABAN
     Indication: Aortic dissection
     Dosage: UNK
     Route: 048
  4. APIXABAN [Concomitant]
     Active Substance: APIXABAN
     Indication: Atrial flutter
     Dosage: 2.5 MG, DAILY

REACTIONS (2)
  - Drug interaction [Unknown]
  - Heparin resistance [Unknown]
